FAERS Safety Report 10654046 (Version 1)
Quarter: 2014Q4

REPORT INFORMATION
  Report Type: Spontaneous
  Country: US (occurrence: None)
  Receive Date: 20141212
  Receipt Date: 20141212
  Transmission Date: 20150529
  Serious: Yes (Disabling, Other)
  Sender: FDA-Public Use
  Company Number: 2014/088

PATIENT
  Age: 59 Year
  Sex: Female

DRUGS (1)
  1. LEVOFLOXACIN. [Suspect]
     Active Substance: LEVOFLOXACIN
     Indication: INFECTION
     Dosage: APPROXIMATELY

REACTIONS (15)
  - Disturbance in attention [None]
  - Depression [None]
  - Paraesthesia [None]
  - Flushing [None]
  - Tearfulness [None]
  - Conversion disorder [None]
  - Intervertebral disc protrusion [None]
  - Poor quality sleep [None]
  - Attention deficit/hyperactivity disorder [None]
  - Amnesia [None]
  - Flat affect [None]
  - Dementia [None]
  - Asthenia [None]
  - Feeling of despair [None]
  - Cyst [None]
